FAERS Safety Report 4796689-8 (Version None)
Quarter: 2005Q4

REPORT INFORMATION
  Report Type: 
  Country: None (occurrence: None)
  Receive Date: 20051007
  Receipt Date: 20050927
  Transmission Date: 20060501
  Serious: Yes (Death)
  Sender: FDA-Public Use
  Company Number: 2005134616

PATIENT
  Age: 19 Year
  Sex: Female

DRUGS (7)
  1. ZITHROMAX [Suspect]
     Indication: LOWER RESPIRATORY TRACT INFECTION
     Dosage: 500 MG (500 MG, DAILY INTERVAL: EVERY DAY), INTRAVENOUS
     Route: 042
     Dates: start: 20050926, end: 20050926
  2. DICYNONE (ETAMSILATE) [Concomitant]
  3. ORIVERA (MEDROXYPROGESTERONE ACETATE) [Concomitant]
  4. KONAKON (PHYTOMENADIONE) [Concomitant]
  5. LOSEC(OMEPRAZOLE) [Concomitant]
  6. CYKLOKAPRON [Concomitant]
  7. METRONIDAZOLE [Concomitant]

REACTIONS (5)
  - HYPOTENSION [None]
  - HYPOVOLAEMIA [None]
  - INCORRECT ROUTE OF DRUG ADMINISTRATION [None]
  - PYREXIA [None]
  - TACHYCARDIA [None]
